FAERS Safety Report 4997850-X (Version None)
Quarter: 2006Q2

REPORT INFORMATION
  Report Type: 
  Country: None (occurrence: None)
  Receive Date: 20060510
  Receipt Date: 20060502
  Transmission Date: 20061013
  Serious: Yes (Hospitalization)
  Sender: FDA-Public Use
  Company Number: US-AVENTIS-200614008US

PATIENT
  Sex: Female
  Weight: 54.54 kg

DRUGS (5)
  1. LOVENOX [Suspect]
     Indication: PROPHYLAXIS
     Dosage: DOSE: UNK
     Dates: start: 20060401
  2. LOVENOX [Suspect]
     Dosage: DOSE: UNK
     Dates: start: 20060502
  3. MORPHINE [Concomitant]
     Dosage: DOSE: UNK
  4. UNKNOWN DRUG [Concomitant]
     Dosage: DOSE: UNK
  5. EPIDURAL [Concomitant]

REACTIONS (2)
  - HEADACHE [None]
  - INTRACRANIAL HYPOTENSION [None]
